FAERS Safety Report 18419622 (Version 1)
Quarter: 2020Q4

REPORT INFORMATION
  Report Type: Spontaneous
  Country: US (occurrence: US)
  Receive Date: 20201023
  Receipt Date: 20201023
  Transmission Date: 20210114
  Serious: Yes (Other)
  Sender: FDA-Public Use
  Company Number: US-SA-2020SA289611

PATIENT

DRUGS (8)
  1. RIFAMPICIN [Suspect]
     Active Substance: RIFAMPIN
     Indication: PRODUCT USED FOR UNKNOWN INDICATION
  2. LISINOPRIL. [Concomitant]
     Active Substance: LISINOPRIL
  3. DOXYCYCLINE. [Concomitant]
     Active Substance: DOXYCYCLINE
  4. JYNARQUE [Suspect]
     Active Substance: TOLVAPTAN
     Dosage: 15 MG, 8 HOURS LATER
     Route: 048
  5. JYNARQUE [Suspect]
     Active Substance: TOLVAPTAN
     Dosage: 90 MG, QD, UPON WAKING
     Route: 048
  6. JYNARQUE [Suspect]
     Active Substance: TOLVAPTAN
     Dosage: 30 MG, QD, 8 HOURS LATER
     Route: 048
  7. JYNARQUE [Suspect]
     Active Substance: TOLVAPTAN
     Indication: CONGENITAL CYSTIC KIDNEY DISEASE
     Dosage: 45 MG, UPON WAKING
     Route: 048
  8. AMLODIPINE BESILATE [Concomitant]
     Active Substance: AMLODIPINE BESYLATE

REACTIONS (10)
  - Blood parathyroid hormone decreased [Unknown]
  - Polyuria [Not Recovered/Not Resolved]
  - Dyspepsia [Not Recovered/Not Resolved]
  - Swelling [Not Recovered/Not Resolved]
  - Blood uric acid increased [Unknown]
  - Liver function test increased [Unknown]
  - Blood calcium increased [Unknown]
  - Thirst [Not Recovered/Not Resolved]
  - Cutaneous T-cell lymphoma [Unknown]
  - Blood creatinine abnormal [Unknown]

NARRATIVE: CASE EVENT DATE: 20190429
